FAERS Safety Report 22130807 (Version 4)
Quarter: 2023Q2

REPORT INFORMATION
  Report Type: Report from Study
  Country: BR (occurrence: BR)
  Receive Date: 20230323
  Receipt Date: 20230616
  Transmission Date: 20230722
  Serious: Yes (Other)
  Sender: FDA-Public Use
  Company Number: BR-002147023-NVSC2022BR263298

PATIENT
  Sex: Female

DRUGS (14)
  1. KISQALI [Suspect]
     Active Substance: RIBOCICLIB
     Indication: Breast cancer
     Dosage: 600 MG, QD
     Route: 065
  2. KISQALI [Suspect]
     Active Substance: RIBOCICLIB
     Dosage: 400 MG
     Route: 065
  3. KISQALI [Suspect]
     Active Substance: RIBOCICLIB
     Dosage: 3 DOSAGE FORM
     Route: 065
  4. KISQALI [Suspect]
     Active Substance: RIBOCICLIB
     Dosage: UNK
     Route: 065
     Dates: start: 20221025
  5. KISQALI [Suspect]
     Active Substance: RIBOCICLIB
     Dosage: 2 DOSAGE FORM
     Route: 065
     Dates: start: 20230303
  6. KISQALI [Suspect]
     Active Substance: RIBOCICLIB
     Dosage: 1 DOSAGE FORM (STOP DATE: 15 DAYS AGO)
     Route: 065
  7. KISQALI [Suspect]
     Active Substance: RIBOCICLIB
     Dosage: 2 DOSAGE FORM
     Route: 065
  8. ATENOLOL\CHLORTHALIDONE [Suspect]
     Active Substance: ATENOLOL\CHLORTHALIDONE
     Indication: Product used for unknown indication
     Dosage: UNK
     Route: 065
  9. RABEPRAZOLE [Suspect]
     Active Substance: RABEPRAZOLE
     Indication: Product used for unknown indication
     Dosage: UNK
     Route: 065
  10. ANASTROZOLE [Suspect]
     Active Substance: ANASTROZOLE
     Indication: Product used for unknown indication
     Dosage: UNK
     Route: 065
  11. ZOMETA [Suspect]
     Active Substance: ZOLEDRONIC ACID
     Indication: Product used for unknown indication
     Dosage: UNK, QMO
     Route: 065
  12. ACYCLOVIR [Concomitant]
     Active Substance: ACYCLOVIR
     Indication: Product used for unknown indication
     Dosage: UNK (DID NOT INFORM THE LABORATORY)
     Route: 061
  13. METFORMIN [Concomitant]
     Active Substance: METFORMIN HYDROCHLORIDE
     Indication: Product used for unknown indication
     Dosage: UNK
     Route: 065
  14. ALPRAZOLAM [Concomitant]
     Active Substance: ALPRAZOLAM
     Indication: Product used for unknown indication
     Dosage: UNK
     Route: 065

REACTIONS (37)
  - Skin disorder [Recovering/Resolving]
  - Skin plaque [Recovering/Resolving]
  - Eye pruritus [Unknown]
  - Paraesthesia [Recovering/Resolving]
  - Skin burning sensation [Recovering/Resolving]
  - Dark circles under eyes [Recovering/Resolving]
  - Skin irritation [Recovering/Resolving]
  - Skin discolouration [Recovering/Resolving]
  - Skin lesion [Recovering/Resolving]
  - Lacrimation increased [Recovering/Resolving]
  - Skin injury [Recovering/Resolving]
  - Skin reaction [Recovering/Resolving]
  - Limb injury [Recovering/Resolving]
  - Eye disorder [Unknown]
  - Genital injury [Unknown]
  - Mouth injury [Unknown]
  - Peripheral swelling [Recovering/Resolving]
  - Pruritus [Unknown]
  - Erythema [Recovering/Resolving]
  - Pruritus [Recovered/Resolved]
  - Alopecia [Recovering/Resolving]
  - Skin exfoliation [Unknown]
  - Discomfort [Unknown]
  - Illness [Not Recovered/Not Resolved]
  - Genital lesion [Unknown]
  - Skin swelling [Unknown]
  - Thyroid mass [Unknown]
  - Lip swelling [Unknown]
  - Drug hypersensitivity [Unknown]
  - Skin haemorrhage [Unknown]
  - Malaise [Unknown]
  - Feeling abnormal [Recovering/Resolving]
  - Erythema [Recovered/Resolved]
  - Nausea [Recovered/Resolved]
  - White blood cell count decreased [Unknown]
  - Thyroid disorder [Unknown]
  - Intentional product use issue [Unknown]
